FAERS Safety Report 8297638-0 (Version None)
Quarter: 2012Q2

REPORT INFORMATION
  Report Type: 
  Country: None (occurrence: None)
  Receive Date: 20120419
  Receipt Date: 20120413
  Transmission Date: 20120825
  Serious: Yes (Hospitalization)
  Sender: FDA-Public Use
  Company Number: DE-PFIZER INC-2012092119

PATIENT
  Age: 61 Year
  Sex: Female
  Weight: 83.8 kg

DRUGS (12)
  1. SOMATROPIN [Suspect]
     Dosage: 0.3 UNK, 7 INJECTIONS PER WEEK
     Dates: start: 20010619, end: 20011106
  2. SOMATROPIN [Suspect]
     Dosage: 0.4 UNK, 7 INJECTIONS PER WEEK
     Dates: start: 20060524, end: 20071111
  3. SOMATROPIN [Suspect]
     Dosage: 0.3 UNK, 7 INJECTIONS PER WEEK
     Dates: start: 20040316, end: 20060523
  4. SOMATROPIN [Suspect]
     Dosage: 0.4 UNK, 7 INJECTIONS PER WEEK
     Dates: start: 20071113, end: 20090406
  5. HYDROCORTISONE [Concomitant]
     Indication: BLOOD CORTICOTROPHIN DECREASED
     Dosage: 20 MG, DAILY
     Dates: start: 20001001
  6. SOMATROPIN [Suspect]
     Indication: GROWTH HORMONE DEFICIENCY
     Dosage: 0.13 UNK, 7 INJECTIONS PER WEEK
     Dates: start: 20001205, end: 20010205
  7. LEVOTHYROXINE SODIUM [Concomitant]
     Dosage: UNK
     Dates: start: 20001001
  8. DESMOPRESSIN [Concomitant]
     Indication: BLOOD ANTIDIURETIC HORMONE DECREASED
     Dosage: 0.25 MG, DAILY
     Dates: start: 20040401
  9. SOMATROPIN [Suspect]
     Dosage: 0.5 UNK, 7 INJECTIONS PER WEEK
     Dates: start: 20071112, end: 20071112
  10. SOMATROPIN [Suspect]
     Dosage: 0.3 UNK, 7 INJECTIONS PER WEEK
     Dates: start: 20090407
  11. SIMVASTATIN [Concomitant]
     Dosage: 10 MG, DAILY
     Dates: start: 20070123
  12. SOMATROPIN [Suspect]
     Dosage: 0.4 UNK, 7 INJECTIONS PER WEEK
     Dates: start: 20011107, end: 20030315

REACTIONS (1)
  - BRAIN NEOPLASM [None]
